FAERS Safety Report 24603447 (Version 4)
Quarter: 2024Q4

REPORT INFORMATION
  Report Type: Spontaneous
  Country: DE (occurrence: DE)
  Receive Date: 20241111
  Receipt Date: 20241223
  Transmission Date: 20250115
  Serious: Yes (Death, Hospitalization, Other)
  Sender: TAKEDA
  Company Number: DE-TAKEDA-2024TUS111979

PATIENT
  Age: 72 Year
  Sex: Male
  Weight: 83 kg

DRUGS (10)
  1. ALBUMIN HUMAN [Suspect]
     Active Substance: ALBUMIN HUMAN
     Indication: Fluid replacement
     Dosage: 500 MILLILITER
  2. PROTAMINE SULFATE [Suspect]
     Active Substance: PROTAMINE SULFATE
     Indication: Heparin resistance
     Dosage: 45000 INTERNATIONAL UNIT
     Dates: start: 20241022, end: 20241022
  3. PROTAMINE SULFATE [Suspect]
     Active Substance: PROTAMINE SULFATE
     Indication: Heparin neutralisation therapy
  4. PROTAMINE SULFATE [Suspect]
     Active Substance: PROTAMINE SULFATE
     Indication: Heart disease congenital
  5. PROTAMINE SULFATE [Suspect]
     Active Substance: PROTAMINE SULFATE
     Indication: Aortic valve disease mixed
  6. PROTAMINE SULFATE [Suspect]
     Active Substance: PROTAMINE SULFATE
     Indication: Mevalonate kinase deficiency
  7. SITAGLIPTIN [Concomitant]
     Active Substance: SITAGLIPTIN
     Indication: Type 2 diabetes mellitus
     Dosage: UNK UNK, BID
  8. DIGITOXIN [Concomitant]
     Active Substance: DIGITOXIN
     Indication: Arrhythmia
     Dosage: UNK UNK, QD
  9. ERLEADA [Concomitant]
     Active Substance: APALUTAMIDE
     Indication: Prostate cancer
     Dosage: UNK UNK, QD
  10. ATORVASTATIN [Concomitant]
     Active Substance: ATORVASTATIN
     Indication: Hypercholesterolaemia
     Dosage: UNK UNK, QD

REACTIONS (10)
  - Anaphylactic reaction [Fatal]
  - Vasoplegia syndrome [Fatal]
  - Non-cardiogenic pulmonary oedema [Fatal]
  - Capillary leak syndrome [Fatal]
  - Disseminated intravascular coagulation [Fatal]
  - Acute pulmonary oedema [Fatal]
  - Shock symptom [Fatal]
  - Cardiac tamponade [Fatal]
  - Multiple organ dysfunction syndrome [Unknown]
  - Blood pressure abnormal [Unknown]

NARRATIVE: CASE EVENT DATE: 20241022
